FAERS Safety Report 4888132-5 (Version None)
Quarter: 2006Q1

REPORT INFORMATION
  Report Type: 
  Country: None (occurrence: None)
  Receive Date: 20060123
  Receipt Date: 20051117
  Transmission Date: 20060701
  Serious: Yes (Hospitalization)
  Sender: FDA-Public Use
  Company Number: US-MERCK-0511USA03100

PATIENT
  Age: 46 Year
  Sex: Female

DRUGS (12)
  1. VYTORIN [Suspect]
     Indication: BLOOD CHOLESTEROL INCREASED
     Route: 048
     Dates: start: 20050301, end: 20050101
  2. VYTORIN [Suspect]
     Route: 048
     Dates: start: 20050901, end: 20051101
  3. GEMFIBROZIL [Concomitant]
     Route: 065
     Dates: start: 20050301, end: 20051101
  4. [THERAPY UNSPECIFIED] [Concomitant]
     Indication: PSYCHOTIC DISORDER
     Route: 065
  5. LAMICTAL [Concomitant]
     Route: 065
  6. ABILIFY [Concomitant]
     Route: 065
  7. PREVACID [Concomitant]
     Route: 065
  8. TOPAMAX [Concomitant]
     Route: 065
  9. TEMAZEPAM [Concomitant]
     Route: 065
  10. KLONOPIN [Concomitant]
     Route: 065
  11. VIVELLE [Concomitant]
     Route: 065
  12. CHLORAZEPATE [Concomitant]
     Route: 065

REACTIONS (4)
  - NAUSEA [None]
  - PAIN [None]
  - RHABDOMYOLYSIS [None]
  - VOMITING [None]
